FAERS Safety Report 6252009-3 (Version None)
Quarter: 2009Q2

REPORT INFORMATION
  Report Type: 
  Country: None (occurrence: None)
  Receive Date: 20090630
  Receipt Date: 20050322
  Transmission Date: 20091009
  Serious: Yes (Death)
  Sender: FDA-Public Use
  Company Number: US-ROCHE-638400

PATIENT
  Sex: Female

DRUGS (4)
  1. ENFUVIRTIDE [Suspect]
     Route: 065
     Dates: start: 20040209, end: 20040318
  2. EPIVIR [Concomitant]
     Dates: start: 20030723, end: 20050216
  3. VIREAD [Concomitant]
     Dates: start: 20030723, end: 20050216
  4. LEXIVA [Concomitant]
     Dates: start: 20040401, end: 20040101

REACTIONS (1)
  - AIDS RELATED COMPLICATION [None]
